FAERS Safety Report 5833218-1 (Version None)
Quarter: 2008Q3

REPORT INFORMATION
  Report Type: 
  Country: None (occurrence: None)
  Receive Date: 20080805
  Receipt Date: 20080729
  Transmission Date: 20090109
  Serious: Yes (Hospitalization)
  Sender: FDA-Public Use
  Company Number: 2001SUS0115

PATIENT
  Age: 46 Year
  Sex: Female

DRUGS (18)
  1. STOCRIN CAPS [Suspect]
     Indication: ACQUIRED IMMUNODEFICIENCY SYNDROME
     Route: 048
     Dates: start: 20000218
  2. STOCRIN CAPS [Suspect]
     Indication: HIV INFECTION
     Route: 048
     Dates: start: 20000218
  3. ZERIT [Suspect]
     Indication: ACQUIRED IMMUNODEFICIENCY SYNDROME
     Dosage: INTERRUPTED FROM 17-FEB-2000 UNTIL 05-DEC-2002
     Route: 048
     Dates: start: 19971110, end: 20000217
  4. ZERIT [Suspect]
     Indication: HIV INFECTION
     Dosage: INTERRUPTED FROM 17-FEB-2000 UNTIL 05-DEC-2002
     Route: 048
     Dates: start: 19971110, end: 20000217
  5. RETROVIR [Suspect]
     Indication: ACQUIRED IMMUNODEFICIENCY SYNDROME
     Dosage: INTERRUPTED 10/6/97 TO 2/18/00 (200 MG 2X/DAY)-DOSAGE INCREASED TO 600 MG/DAY FROM 6/15-6/22/00
     Route: 048
     Dates: start: 19970901, end: 20000622
  6. RETROVIR [Suspect]
     Indication: HIV INFECTION
     Dosage: INTERRUPTED 10/6/97 TO 2/18/00 (200 MG 2X/DAY)-DOSAGE INCREASED TO 600 MG/DAY FROM 6/15-6/22/00
     Route: 048
     Dates: start: 19970901, end: 20000622
  7. EPIVIR [Suspect]
     Indication: ACQUIRED IMMUNODEFICIENCY SYNDROME
     Dosage: INTERRUPTED 06-OCT-1997 TO 10-NOV-1997 AND 22-JUN-2000 TO 05-DEC-2002.
     Route: 048
     Dates: start: 19970901, end: 20050720
  8. EPIVIR [Suspect]
     Indication: HIV INFECTION
     Dosage: INTERRUPTED 06-OCT-1997 TO 10-NOV-1997 AND 22-JUN-2000 TO 05-DEC-2002.
     Route: 048
     Dates: start: 19970901, end: 20050720
  9. LAMIVUDINE AND ZIDOVUDINE [Suspect]
     Indication: ACQUIRED IMMUNODEFICIENCY SYNDROME
     Route: 048
     Dates: start: 20000623, end: 20021205
  10. LAMIVUDINE AND ZIDOVUDINE [Suspect]
     Indication: HIV INFECTION
     Route: 048
     Dates: start: 20000623, end: 20021205
  11. VIRACEPT [Suspect]
     Indication: ACQUIRED IMMUNODEFICIENCY SYNDROME
     Dosage: INTERRUPTED 10/6/97 TO 11/10/97-DOSAGE INCREASED TO 1250 MG TWICE DAILY FROM 3/15/99 TO 2/17/00
     Route: 048
     Dates: start: 19970901, end: 20000217
  12. VIRACEPT [Suspect]
     Indication: HIV INFECTION
     Dosage: INTERRUPTED 10/6/97 TO 11/10/97-DOSAGE INCREASED TO 1250 MG TWICE DAILY FROM 3/15/99 TO 2/17/00
     Route: 048
     Dates: start: 19970901, end: 20000217
  13. EPZICOM [Suspect]
     Indication: HIV INFECTION
     Route: 048
     Dates: start: 20050721
  14. INSULIN [Concomitant]
     Route: 058
     Dates: start: 19971002
  15. CLARITHROMYCIN [Concomitant]
     Dates: start: 19970901, end: 19990421
  16. COTRIM [Concomitant]
     Dosage: DOSE RANGE - 1 TO 12 TABLETS
     Route: 048
     Dates: start: 19970901, end: 19990819
  17. PENTAMIDINE ISETHIONATE [Concomitant]
     Dosage: THEN 300 MG ORALLY AND 300 MG TOPICALLY FROM 27 SEP 1997 TO 15 OCT 1997
     Route: 042
     Dates: start: 19970915, end: 19970927
  18. ZOVIRAX [Concomitant]
     Dates: start: 19990114, end: 20000525

REACTIONS (7)
  - ANAEMIA [None]
  - CONSTIPATION [None]
  - DIABETES MELLITUS [None]
  - GENITAL HERPES [None]
  - LIPODYSTROPHY ACQUIRED [None]
  - PNEUMOCYSTIS JIROVECI INFECTION [None]
  - URINE ABNORMALITY [None]
